FAERS Safety Report 9193849 (Version 1)
Quarter: 2013Q1

REPORT INFORMATION
  Report Type: Spontaneous
  Country: FR (occurrence: FR)
  Receive Date: 20130327
  Receipt Date: 20130327
  Transmission Date: 20140127
  Serious: Yes (Other)
  Sender: FDA-Public Use
  Company Number: FR-ALLERGAN-1304277US

PATIENT
  Age: 54 Year
  Sex: Female

DRUGS (1)
  1. OZURDEX [Suspect]
     Indication: MACULAR OEDEMA
     Dosage: 0.7 MG, SINGLE
     Route: 031

REACTIONS (3)
  - Blindness transient [Recovering/Resolving]
  - Corneal oedema [Recovered/Resolved]
  - Device dislocation [Recovered/Resolved]
